FAERS Safety Report 9444049 (Version 1)
Quarter: 2013Q3

REPORT INFORMATION
  Report Type: Spontaneous
  Country: US (occurrence: None)
  Receive Date: 20130806
  Receipt Date: 20130806
  Transmission Date: 20140515
  Serious: Yes (Death)
  Sender: FDA-Public Use
  Company Number: None

PATIENT
  Age: 84 Year
  Sex: Male
  Weight: 73.6 kg

DRUGS (2)
  1. VELCADE [Suspect]
     Indication: PLASMA CELL MYELOMA
     Dates: start: 20130615, end: 20130701
  2. REVLIMID [Suspect]
     Dosage: 10MG DAILY ORAL?8 DOSES TAKEN
     Route: 048

REACTIONS (3)
  - Respiratory failure [None]
  - Acute respiratory distress syndrome [None]
  - Interstitial lung disease [None]
